FAERS Safety Report 9506033 (Version 1)
Quarter: 2013Q1

REPORT INFORMATION
  Report Type: Spontaneous
  Country: US (occurrence: None)
  Receive Date: 20130305
  Receipt Date: 20130305
  Transmission Date: 20140127
  Serious: No
  Sender: FDA-Public Use
  Company Number: 163-21880-12050338

PATIENT
  Age: 66 Year
  Sex: Male
  Weight: 111.13 kg

DRUGS (5)
  1. REVLIMID [Suspect]
     Indication: MYELODYSPLASTIC SYNDROME
     Dosage: 5MG, 1 IN 1D, PO
     Route: 048
     Dates: start: 201203, end: 20120426
  2. METFORMIN (METFORMIN) [Concomitant]
  3. ASPIRIN USA (ACETYLSALICYLIC ACID) [Concomitant]
  4. HBP [Concomitant]
  5. THYROID (THYROID) [Concomitant]

REACTIONS (2)
  - Platelet count decreased [None]
  - Rash generalised [None]
